FAERS Safety Report 6173127-4 (Version None)
Quarter: 2009Q2

REPORT INFORMATION
  Report Type: 
  Country: None (occurrence: None)
  Receive Date: 20090430
  Receipt Date: 20090422
  Transmission Date: 20091009
  Serious: Yes (Life-Threatening, Hospitalization)
  Sender: FDA-Public Use
  Company Number: FR-PFIZER INC-2009201338

PATIENT

DRUGS (5)
  1. CAMPTOSAR [Suspect]
     Indication: COLORECTAL CANCER
     Dosage: 303 MG, CYCLIC
     Route: 042
     Dates: start: 20081125, end: 20090201
  2. SOLU-MEDROL [Suspect]
     Dosage: 80 MG, CYCLIC
     Route: 042
     Dates: start: 20081125, end: 20090201
  3. AVASTIN [Suspect]
     Indication: COLORECTAL CANCER
     Dosage: 315 MG, CYCLIC
     Route: 042
     Dates: start: 20081125, end: 20090201
  4. KYTRIL [Suspect]
     Dosage: UNK
     Dates: start: 20081125, end: 20090201
  5. ELVORINE [Suspect]
     Dosage: UNK
     Route: 042
     Dates: start: 20081125, end: 20090201

REACTIONS (1)
  - ISCHAEMIC STROKE [None]
